FAERS Safety Report 9159825 (Version 2)
Quarter: 2013Q2

REPORT INFORMATION
  Report Type: Report from Study
  Country: BR (occurrence: BR)
  Receive Date: 20130313
  Receipt Date: 20130416
  Transmission Date: 20140414
  Serious: Yes (Other)
  Sender: FDA-Public Use
  Company Number: PHHY2013BR024243

PATIENT
  Sex: Female

DRUGS (5)
  1. DIOVAN HCT [Suspect]
     Indication: HYPERTENSION
     Dosage: 1 DF, (VALS 320 MG, AMLO 12.5 MG IN THE MORNING) QD
     Route: 048
  2. SOMALGIN [Concomitant]
     Indication: HYPERTENSION
     Dosage: 1 DF, DAILY
     Route: 048
  3. ATORVASTATIN [Concomitant]
     Indication: BLOOD CHOLESTEROL INCREASED
     Dosage: 1 DF, DAILY
     Route: 048
  4. CLOPIDOGREL BISULFATE [Concomitant]
     Indication: HEART RATE ABNORMAL
     Dosage: 1 DF, DAILY
     Route: 048
  5. OMEPRAZOLE [Concomitant]
     Indication: PROPHYLAXIS
     Dosage: 1 DF, DAILY
     Route: 048

REACTIONS (2)
  - Infarction [Recovering/Resolving]
  - Diabetes mellitus [Recovering/Resolving]
